FAERS Safety Report 4417650-9 (Version None)
Quarter: 2004Q2

REPORT INFORMATION
  Report Type: 
  Country: None (occurrence: None)
  Receive Date: 20040625
  Receipt Date: 20040513
  Transmission Date: 20050107
  Serious: Yes (Hospitalization)
  Sender: FDA-Public Use
  Company Number: 206180

PATIENT
  Age: 65 Year
  Sex: Male
  Weight: 117 kg

DRUGS (11)
  1. AVASTIN [Suspect]
     Indication: COLORECTAL CANCER METASTATIC
     Dosage: 5 MG/KG, Q2W, INTRAVENOUS
     Route: 042
     Dates: end: 20040405
  2. IRINOTECAN (IRINOTECAN HYDROCHLORIDE) [Concomitant]
  3. FLUOROURACIL [Concomitant]
  4. LEUCOVORIN CALCIUM [Concomitant]
  5. COUMADIN [Concomitant]
  6. GLIPIZIDE (GLIPIDIZIDE) [Concomitant]
  7. PROPRANOLOL [Concomitant]
  8. GLUCOPHAGE [Concomitant]
  9. K-DUR 10 [Concomitant]
  10. ATIVAN [Concomitant]
  11. LOVENOX [Concomitant]

REACTIONS (1)
  - MUSCLE HAEMORRHAGE [None]
